FAERS Safety Report 5875559-8 (Version None)
Quarter: 2008Q3

REPORT INFORMATION
  Report Type: 
  Country: None (occurrence: None)
  Receive Date: 20080909
  Receipt Date: 20080825
  Transmission Date: 20090109
  Serious: Yes (Death, Hospitalization)
  Sender: FDA-Public Use
  Company Number: JP-SANOFI-SYNTHELABO-A01200810246

PATIENT
  Sex: Female

DRUGS (19)
  1. URSO 250 [Concomitant]
     Indication: CHOLELITHIASIS
     Dosage: UNK
     Route: 048
     Dates: start: 20020919, end: 20020925
  2. VOLTAREN [Concomitant]
     Indication: ANALGESIA
     Dosage: UNK
     Route: 065
     Dates: start: 20020925, end: 20020925
  3. FUTHAN [Concomitant]
     Indication: ANALGESIA
     Dosage: 80 ML
     Route: 065
     Dates: start: 20020925, end: 20020925
  4. MIRACLID [Concomitant]
     Indication: SHOCK
     Dosage: 0.1 MIU
     Route: 065
     Dates: start: 20020926, end: 20020926
  5. DIAZEPAM [Concomitant]
     Indication: ENDOSCOPIC RETROGRADE CHOLANGIOPANCREATOGRAPHY
     Dosage: UNK
     Route: 065
     Dates: start: 20020924, end: 20020924
  6. INDIGOCARMINE [Concomitant]
     Indication: PANCREATOGRAPHY
     Dosage: UNK
     Route: 065
     Dates: start: 20020924, end: 20020924
  7. UROGRAFIN [Concomitant]
     Indication: PANCREATOGRAPHY
     Dosage: 20 ML
     Route: 065
     Dates: start: 20020924, end: 20020924
  8. CEFAMEZIN [Concomitant]
     Indication: PROPHYLAXIS
     Dosage: 0.5 G
     Route: 065
     Dates: start: 20020924, end: 20020924
  9. XYLOCAINE [Concomitant]
     Indication: PREMEDICATION
     Dosage: 5 ML
     Route: 048
     Dates: start: 20020924, end: 20020924
  10. XYLOCAINE [Concomitant]
     Dosage: UNK
     Route: 048
     Dates: start: 20020924, end: 20020924
  11. ATROPINE SULFATE [Concomitant]
     Indication: PREMEDICATION
     Dosage: 1 UNIT
     Route: 030
     Dates: start: 20020924, end: 20020924
  12. PENTAZOCINE LACTATE [Suspect]
     Indication: ABDOMINAL PAIN
     Route: 065
     Dates: start: 20020925, end: 20020925
  13. GASCON [Concomitant]
     Indication: PREMEDICATION
     Dosage: 10 ML
     Route: 048
     Dates: start: 20020924, end: 20020924
  14. BUSCOPAN [Concomitant]
     Indication: ABDOMINAL PAIN UPPER
     Dosage: 2 UNIT
     Route: 042
     Dates: start: 20020917, end: 20020917
  15. BUSCOPAN [Concomitant]
     Indication: PREMEDICATION
     Dosage: 2 UNIT
     Route: 042
     Dates: start: 20020917, end: 20020917
  16. BUSCOPAN [Concomitant]
     Dosage: 1 UNIT
     Route: 030
     Dates: start: 20020924, end: 20020924
  17. BUSCOPAN [Concomitant]
     Dosage: 1 UNIT
     Route: 030
     Dates: start: 20020924, end: 20020924
  18. BUSCOPAN [Concomitant]
     Dosage: 3 UNIT
     Route: 065
     Dates: start: 20020925, end: 20020925
  19. BUSCOPAN [Concomitant]
     Dosage: 3 UNIT
     Route: 065
     Dates: start: 20020925, end: 20020925

REACTIONS (1)
  - PANCREATITIS [None]
